FAERS Safety Report 7997302-9 (Version None)
Quarter: 2011Q4

REPORT INFORMATION
  Report Type: 
  Country: None (occurrence: None)
  Receive Date: 20111221
  Receipt Date: 20111213
  Transmission Date: 20120403
  Serious: No
  Sender: FDA-Public Use
  Company Number: US-US-EMD SERONO, INC.-7094726

PATIENT
  Sex: Female

DRUGS (2)
  1. REBIF [Suspect]
     Indication: MULTIPLE SCLEROSIS
     Route: 058
     Dates: start: 20110406
  2. NEURONTIN [Concomitant]
     Indication: PAIN IN EXTREMITY

REACTIONS (4)
  - ALANINE AMINOTRANSFERASE INCREASED [None]
  - THYROIDITIS SUBACUTE [None]
  - BODY TEMPERATURE INCREASED [None]
  - INJECTION SITE ERYTHEMA [None]
